FAERS Safety Report 22166820 (Version 5)
Quarter: 2023Q2

REPORT INFORMATION
  Report Type: Spontaneous
  Country: FR (occurrence: FR)
  Receive Date: 20230403
  Receipt Date: 20230523
  Transmission Date: 20230721
  Serious: Yes (Hospitalization)
  Sender: FDA-Public Use
  Company Number: None

PATIENT
  Age: 55 Year
  Sex: Male

DRUGS (24)
  1. RITUXIMAB [Suspect]
     Active Substance: RITUXIMAB
     Indication: Diffuse large B-cell lymphoma
     Dosage: UNK (1 CURE)
     Route: 065
     Dates: start: 20221227
  2. VALACYCLOVIR HYDROCHLORIDE [Suspect]
     Active Substance: VALACYCLOVIR HYDROCHLORIDE
     Indication: Bacterial infection
     Dosage: 1000 MG (500 MG MATIN ET SOIR)
     Route: 048
     Dates: start: 20230106
  3. ACETAMINOPHEN [Suspect]
     Active Substance: ACETAMINOPHEN
     Indication: Pain
     Dosage: 1 DOSAGE FORM, Q6H (1 CP TOUTES LES 6 HEURES, MAXIMUM 3 CP/J))
     Route: 048
     Dates: start: 20230211
  4. CIPROFLOXACIN [Suspect]
     Active Substance: CIPROFLOXACIN
     Indication: Bacterial infection
     Dosage: UNK
     Route: 065
     Dates: start: 20230203, end: 20230208
  5. PANTOPRAZOLE [Suspect]
     Active Substance: PANTOPRAZOLE
     Indication: Constipation
     Dosage: 20 MG
     Route: 048
     Dates: start: 20230106
  6. PANTOPRAZOLE [Suspect]
     Active Substance: PANTOPRAZOLE
     Indication: Gastritis prophylaxis
  7. CYCLOPHOSPHAMIDE [Suspect]
     Active Substance: CYCLOPHOSPHAMIDE
     Indication: Diffuse large B-cell lymphoma
     Dosage: UNK (1 CURE)
     Route: 065
     Dates: start: 20221227
  8. NALOXEGOL OXALATE [Suspect]
     Active Substance: NALOXEGOL OXALATE
     Indication: Constipation
     Dosage: 25 MG, PRN (IF NECESSARY)
     Route: 048
     Dates: start: 20230211
  9. CILASTATIN SODIUM\IMIPENEM [Suspect]
     Active Substance: CILASTATIN SODIUM\IMIPENEM
     Indication: Bacterial infection
     Dosage: 800 MG, QD
     Route: 042
     Dates: start: 20230114, end: 20230208
  10. DOXORUBICIN [Suspect]
     Active Substance: DOXORUBICIN
     Indication: Diffuse large B-cell lymphoma
     Dosage: 1 CURE
     Route: 065
     Dates: start: 20221227
  11. BACTRIM [Suspect]
     Active Substance: SULFAMETHOXAZOLE\TRIMETHOPRIM
     Indication: Bacterial infection
     Dosage: 400 MG, QD (1 DF, 1 TAB IN THE MORNING)
     Route: 048
     Dates: start: 20230106, end: 20230303
  12. LOVENOX [Suspect]
     Active Substance: ENOXAPARIN SODIUM
     Indication: Prophylaxis
     Dosage: 4000 IU
     Route: 058
     Dates: start: 20230210
  13. LOVENOX [Suspect]
     Active Substance: ENOXAPARIN SODIUM
     Indication: Constipation
  14. MORPHINE SULFATE [Suspect]
     Active Substance: MORPHINE SULFATE
     Indication: Pain
     Dosage: 30 MG, BID (1 CP SKENAN LP30MG TOUTES LES 12H)
     Route: 048
     Dates: start: 20230210, end: 20230218
  15. METRONIDAZOLE [Suspect]
     Active Substance: METRONIDAZOLE
     Indication: Bacterial infection
     Dosage: 500 MG MATIN, MIDI ET SOIR
     Route: 048
     Dates: start: 20230209, end: 20230303
  16. VINCRISTINE SULFATE [Suspect]
     Active Substance: VINCRISTINE SULFATE
     Indication: Diffuse large B-cell lymphoma
     Dosage: UNK (1 COURSE)
     Route: 065
     Dates: start: 20221227
  17. AMITRIPTYLINE HYDROCHLORIDE [Suspect]
     Active Substance: AMITRIPTYLINE HYDROCHLORIDE
     Indication: Pain
     Dosage: 35 DRP, QD (5 GOUTTES MATIN ET 10 GOUTTES MIDI ET SOIR)
     Route: 048
     Dates: start: 20221210
  18. DAPTOMYCIN [Suspect]
     Active Substance: DAPTOMYCIN
     Indication: Bacterial infection
     Dosage: 1 G
     Route: 042
     Dates: start: 20230211, end: 20230306
  19. ACUPAN [Suspect]
     Active Substance: NEFOPAM HYDROCHLORIDE
     Indication: Pain
     Dosage: 1 DOSAGE FORM, Q4H (UNE AMPOULE TOUTES LES 4 HEURES SI DOULEUR)
     Route: 048
     Dates: start: 20230106, end: 20230302
  20. ARANESP [Suspect]
     Active Substance: DARBEPOETIN ALFA
     Indication: Anaemia
     Dosage: 1 DOSAGE FORM, QW (1 ADMINISTRATION PAR SEMAINE)
     Route: 058
     Dates: start: 20230213
  21. CASPOFUNGIN ACETATE [Suspect]
     Active Substance: CASPOFUNGIN ACETATE
     Indication: Fungal infection
     Dosage: 70 MG
     Route: 042
     Dates: start: 20230126
  22. ALPRAZOLAM [Suspect]
     Active Substance: ALPRAZOLAM
     Indication: Anxiety
     Dosage: 0.25 MG (1 CP 0.25MG SI ANGOISSE)
     Route: 048
     Dates: start: 20230106, end: 20230209
  23. LEUCOVORIN CALCIUM [Suspect]
     Active Substance: LEUCOVORIN CALCIUM
     Indication: Prophylaxis
     Dosage: 2 DOSAGE FORM,  0.5 WEEK (A TAB EVERY MONDAY AND THURSDAY)
     Route: 048
     Dates: start: 20230102
  24. CEFTRIAXONE [Suspect]
     Active Substance: CEFTRIAXONE
     Indication: Bacterial infection
     Dosage: 2 G, QD (1 G MATIN ET SOIR)
     Route: 048
     Dates: start: 20230209

REACTIONS (1)
  - Agranulocytosis [Recovered/Resolved]

NARRATIVE: CASE EVENT DATE: 20230201
